APPROVED DRUG PRODUCT: CEFTRIAXONE
Active Ingredient: CEFTRIAXONE SODIUM
Strength: EQ 10GM BASE/VIAL
Dosage Form/Route: INJECTABLE;INJECTION
Application: A091068 | Product #001
Applicant: AGILA SPECIALTIES PRIVATE LTD
Approved: Jan 7, 2013 | RLD: No | RS: No | Type: DISCN